FAERS Safety Report 10492564 (Version 1)
Quarter: 2014Q4

REPORT INFORMATION
  Report Type: Spontaneous
  Country: US (occurrence: US)
  Receive Date: 20141002
  Receipt Date: 20141002
  Transmission Date: 20150528
  Serious: No
  Sender: FDA-Public Use
  Company Number: US-GLAXOSMITHKLINE-A1072640A

PATIENT
  Age: 61 Year
  Sex: Female

DRUGS (11)
  1. LOSARTAN [Concomitant]
     Active Substance: LOSARTAN
  2. VITAMIN D3 [Concomitant]
     Active Substance: CHOLECALCIFEROL
  3. LINZESS [Concomitant]
     Active Substance: LINACLOTIDE
  4. DOCUSATE [Concomitant]
     Active Substance: DOCUSATE
  5. ADVAIR HFA [Suspect]
     Active Substance: FLUTICASONE PROPIONATE\SALMETEROL XINAFOATE
     Indication: ASTHMA
     Dosage: 1PUFF TWICE PER DAY
     Route: 055
     Dates: start: 2007
  6. MULTIVITAMIN [Concomitant]
     Active Substance: VITAMINS
  7. BACLOFEN. [Concomitant]
     Active Substance: BACLOFEN
  8. OMEPRAZOLE. [Concomitant]
     Active Substance: OMEPRAZOLE
  9. LEVOTHYROXINE [Concomitant]
     Active Substance: LEVOTHYROXINE
  10. NAPROXEN. [Concomitant]
     Active Substance: NAPROXEN
  11. AMLODIPINE [Concomitant]
     Active Substance: AMLODIPINE BESYLATE

REACTIONS (3)
  - Blood pressure increased [Recovered/Resolved]
  - Product quality issue [Unknown]
  - Dyspnoea [Recovered/Resolved]

NARRATIVE: CASE EVENT DATE: 201403
